FAERS Safety Report 4625342-6 (Version None)
Quarter: 2005Q2

REPORT INFORMATION
  Report Type: 
  Country: None (occurrence: None)
  Receive Date: 20050401
  Receipt Date: 20041119
  Transmission Date: 20051028
  Serious: Yes (Other)
  Sender: FDA-Public Use
  Company Number: FR-GLAXOSMITHKLINE-B0358326A

PATIENT
  Age: 43 Year
  Sex: Male

DRUGS (4)
  1. ZIAGEN [Suspect]
     Indication: HIV INFECTION
     Route: 048
     Dates: start: 20041104, end: 20041108
  2. ZIAGEN [Suspect]
     Route: 048
     Dates: start: 20010401, end: 20041104
  3. KALETRA [Concomitant]
     Indication: HIV INFECTION
     Route: 048
     Dates: start: 20030501, end: 20041108
  4. ZERIT [Concomitant]
     Indication: HIV INFECTION
     Route: 048
     Dates: start: 20040501, end: 20041108

REACTIONS (4)
  - FATIGUE [None]
  - HOT FLUSH [None]
  - MALAISE [None]
  - PAIN [None]
